FAERS Safety Report 18901309 (Version 3)
Quarter: 2021Q2

REPORT INFORMATION
  Report Type: Spontaneous
  Country: US (occurrence: US)
  Receive Date: 20210217
  Receipt Date: 20210409
  Transmission Date: 20210717
  Serious: No
  Sender: FDA-Public Use
  Company Number: US-ASTRAZENECA-2021A036282

PATIENT
  Sex: Female
  Weight: 55.8 kg

DRUGS (4)
  1. SYMBICORT [Suspect]
     Active Substance: BUDESONIDE\FORMOTEROL FUMARATE DIHYDRATE
     Indication: BRONCHITIS CHRONIC
     Dosage: 80/4.5 MCG TWO INHALATIONS TWICE A DAY 2 PUFFS IN THE MORNING AND 2 PUFFS AT NIGHT
     Route: 055
     Dates: start: 20210125
  2. PROMETHAZINE WIT  DEXTRORPHANOL  COUGH SYRUP [Concomitant]
     Indication: COUGH
     Route: 048
  3. ALBUTEROL. [Concomitant]
     Active Substance: ALBUTEROL
     Indication: INHALATION THERAPY
     Dosage: AS REQUIRED
     Route: 055
  4. SYMBICORT [Suspect]
     Active Substance: BUDESONIDE\FORMOTEROL FUMARATE DIHYDRATE
     Indication: PNEUMONITIS
     Dosage: 80/4.5 MCG TWO INHALATIONS TWICE A DAY 2 PUFFS IN THE MORNING AND 2 PUFFS AT NIGHT
     Route: 055
     Dates: start: 20210125

REACTIONS (22)
  - Chest pain [Unknown]
  - Dry mouth [Unknown]
  - Intentional device misuse [Unknown]
  - Depression [Unknown]
  - Asthenopia [Not Recovered/Not Resolved]
  - Balance disorder [Not Recovered/Not Resolved]
  - Dizziness [Unknown]
  - Cough [Unknown]
  - Wheezing [Unknown]
  - Drug dose omission by device [Unknown]
  - Secretion discharge [Not Recovered/Not Resolved]
  - Illness [Unknown]
  - Increased upper airway secretion [Not Recovered/Not Resolved]
  - Back pain [Unknown]
  - Headache [Not Recovered/Not Resolved]
  - Discomfort [Not Recovered/Not Resolved]
  - Pyrexia [Unknown]
  - Osteoarthritis [Unknown]
  - Dysphonia [Not Recovered/Not Resolved]
  - Aphonia [Unknown]
  - Drug delivery system issue [Unknown]
  - Device defective [Unknown]
